FAERS Safety Report 8399338-5 (Version None)
Quarter: 2012Q1

REPORT INFORMATION
  Report Type: 
  Country: None (occurrence: None)
  Receive Date: 20120323
  Receipt Date: 20110831
  Transmission Date: 20120608
  Serious: Yes (Other)
  Sender: FDA-Public Use
  Company Number: 163-21880-11020730

PATIENT
  Age: 73 Year
  Sex: Female

DRUGS (2)
  1. REVLIMID [Suspect]
     Indication: MYELODYSPLASTIC SYNDROME
     Dosage: 10 MG, 1 IN 1 D, PO 10 MG, 1 IN 1 D, PO
     Route: 048
     Dates: start: 20100819, end: 20101201
  2. REVLIMID [Suspect]
     Indication: MYELODYSPLASTIC SYNDROME
     Dosage: 10 MG, 1 IN 1 D, PO 10 MG, 1 IN 1 D, PO
     Route: 048
     Dates: start: 20110101, end: 20110509

REACTIONS (4)
  - THROMBOCYTOPENIA [None]
  - HAEMOGLOBIN DECREASED [None]
  - OEDEMA PERIPHERAL [None]
  - NEUTROPENIA [None]
